FAERS Safety Report 7631947-0 (Version None)
Quarter: 2011Q3

REPORT INFORMATION
  Report Type: 
  Country: None (occurrence: None)
  Receive Date: 20110725
  Receipt Date: 20110516
  Transmission Date: 20111222
  Serious: No
  Sender: FDA-Public Use
  Company Number: US-BRISTOL-MYERS SQUIBB COMPANY-15747397

PATIENT
  Age: 43 Year
  Sex: Female

DRUGS (2)
  1. COUMADIN [Suspect]
     Dosage: STOPPED ON 22APR2011,RESTARTED ON 28APR2011 DURATION: 21YEARS
  2. PRILOSEC [Concomitant]

REACTIONS (1)
  - ENDOSCOPY UPPER GASTROINTESTINAL TRACT [None]
